FAERS Safety Report 8144879 (Version 3)
Quarter: 2013Q1

REPORT INFORMATION
  Report Type: Spontaneous
  Country: US (occurrence: US)
  Receive Date: 20110920
  Receipt Date: 20130220
  Transmission Date: 20140127
  Serious: No
  Sender: FDA-Public Use
  Company Number: US-B.I. PHARMACEUTICALS,INC./RIDGEFIELD-2011-BP-22371BP

PATIENT
  Sex: Male

DRUGS (4)
  1. TRADJENTA [Suspect]
     Indication: TYPE 2 DIABETES MELLITUS
     Dosage: 5 MG
     Route: 048
     Dates: start: 20110908
  2. NORVASC [Concomitant]
     Indication: HYPERTENSION
     Dosage: 10 MG
     Route: 048
     Dates: start: 2008
  3. ALTACE [Concomitant]
     Indication: DIABETES MELLITUS
     Dosage: 10 MG
     Route: 048
     Dates: start: 2003
  4. AMARYL [Concomitant]
     Indication: HYPERTENSION
     Dosage: 8 MG
     Route: 048
     Dates: start: 2003

REACTIONS (2)
  - Musculoskeletal stiffness [Unknown]
  - Drug ineffective [Unknown]
